FAERS Safety Report 9815894 (Version 1)
Quarter: 2014Q1

REPORT INFORMATION
  Report Type: Spontaneous
  Country: US (occurrence: US)
  Receive Date: 20140114
  Receipt Date: 20140114
  Transmission Date: 20141002
  Serious: Yes (Death, Other)
  Sender: FDA-Public Use
  Company Number: US-BAXTER-2014BAX001439

PATIENT
  Age: 51 Year
  Sex: Male

DRUGS (6)
  1. CEFTRIAXONE INJECTION, USP (IN DEXTROSE) [Suspect]
     Indication: NOCARDIOSIS
  2. BACTRIM [Suspect]
     Indication: NOCARDIOSIS
     Route: 048
  3. LINEZOLID [Suspect]
     Indication: NOCARDIOSIS
  4. IMIPENEM [Suspect]
     Indication: NOCARDIOSIS
  5. PREDNISONE [Concomitant]
     Indication: CHRONIC GRANULOMATOUS DISEASE
  6. METHOTREXATE [Concomitant]
     Indication: CHRONIC GRANULOMATOUS DISEASE

REACTIONS (2)
  - Death [Fatal]
  - Cranial nerve palsies multiple [Unknown]
